FAERS Safety Report 4841786-1 (Version None)
Quarter: 2005Q4

REPORT INFORMATION
  Report Type: 
  Country: None (occurrence: None)
  Receive Date: 20051130
  Receipt Date: 20051021
  Transmission Date: 20060501
  Serious: Yes (Death, Hospitalization)
  Sender: FDA-Public Use
  Company Number: JP-ROCHE-421932

PATIENT
  Age: 57 Year
  Sex: Female

DRUGS (15)
  1. PANALDINE [Suspect]
     Indication: THROMBOSIS PROPHYLAXIS
     Dosage: OTHER INDICATIONS: STENT PLACEMENT, MYOCARDIAL INFARCTION.
     Route: 048
     Dates: start: 20050929, end: 20051011
  2. CEFAZOLIN [Suspect]
     Indication: INFARCTION
     Route: 042
  3. MUCOSTA [Concomitant]
     Indication: GASTRITIS
     Route: 048
  4. SIGMART [Concomitant]
     Indication: ANGINA PECTORIS
     Route: 048
     Dates: start: 20040610
  5. ASPIRIN [Concomitant]
     Indication: ANGINA PECTORIS
     Dosage: SECOND INDICATION OF ATHEROSCLEROSIS OBLITERANS REPORTED.
     Route: 048
     Dates: start: 20040614
  6. ANCARON [Concomitant]
     Route: 048
  7. ALLOPURINOL [Concomitant]
     Route: 048
     Dates: start: 20041209
  8. PURSENNID [Concomitant]
     Indication: CONSTIPATION
     Route: 048
     Dates: start: 20041117
  9. SODIUM BICARBONATE [Concomitant]
     Route: 048
     Dates: start: 20051004
  10. KALIMATE [Concomitant]
     Route: 048
     Dates: start: 20051006
  11. ANPLAG [Concomitant]
     Indication: ANGINA PECTORIS
     Route: 048
     Dates: start: 20051011
  12. GASTER [Concomitant]
     Indication: GASTRITIS
     Route: 048
     Dates: start: 20051015
  13. MYSLEE [Concomitant]
     Indication: INSOMNIA
     Route: 048
  14. URSO [Concomitant]
     Dosage: INDICATION REPORTED AS ^COMMON BILE DUCT^.
     Route: 048
  15. FOIPAN [Concomitant]
     Dosage: INDICATION REPORTED AS ^COMMON BILE DUCT^.
     Route: 048

REACTIONS (11)
  - ALANINE AMINOTRANSFERASE INCREASED [None]
  - ASPARTATE AMINOTRANSFERASE INCREASED [None]
  - DISSEMINATED INTRAVASCULAR COAGULATION [None]
  - DRUG INEFFECTIVE [None]
  - HAEMOLYTIC ANAEMIA [None]
  - HEPATIC FUNCTION ABNORMAL [None]
  - LOSS OF CONSCIOUSNESS [None]
  - MALAISE [None]
  - PULMONARY INFARCTION [None]
  - THROMBOCYTOPENIA [None]
  - VENOUS THROMBOSIS [None]
